FAERS Safety Report 8561451-7 (Version None)
Quarter: 2012Q3

REPORT INFORMATION
  Report Type: 
  Country: None (occurrence: None)
  Receive Date: 20120802
  Receipt Date: 20120727
  Transmission Date: 20120928
  Serious: Yes (Other)
  Sender: FDA-Public Use
  Company Number: JP-GLAXOSMITHKLINE-B0819225A

PATIENT
  Age: 30 Year
  Sex: Female

DRUGS (5)
  1. MUCODYNE [Concomitant]
     Route: 048
     Dates: start: 20120501
  2. FLUTICASONE PROPIONATE/SALMETEROL [Suspect]
     Indication: ASTHMA
     Dosage: 500MCG PER DAY
     Route: 055
     Dates: start: 20120501, end: 20120710
  3. POLARAMINE [Concomitant]
     Route: 048
     Dates: start: 20120501
  4. FLUTICASONE PROPIONATE/SALMETEROL [Suspect]
     Dosage: 500MCG PER DAY
     Route: 055
     Dates: start: 20120727, end: 20120727
  5. SINGULAIR [Concomitant]
     Route: 048
     Dates: start: 20120501

REACTIONS (2)
  - ASTHMA [None]
  - URTICARIA [None]
